FAERS Safety Report 17956092 (Version 1)
Quarter: 2020Q2

REPORT INFORMATION
  Report Type: Spontaneous
  Country: US (occurrence: US)
  Receive Date: 20200629
  Receipt Date: 20200629
  Transmission Date: 20200714
  Serious: No
  Sender: FDA-Public Use
  Company Number: US-PFIZER INC-2020246365

PATIENT
  Age: 38 Year
  Sex: Female
  Weight: 60.78 kg

DRUGS (1)
  1. PREGABALIN. [Suspect]
     Active Substance: PREGABALIN
     Indication: FIBROMYALGIA
     Dosage: WHATEVER WAS EQUIVALENT TO THE TIME RELEASE 200 MG

REACTIONS (2)
  - Tension [Not Recovered/Not Resolved]
  - Drug ineffective [Not Recovered/Not Resolved]
